FAERS Safety Report 9964027 (Version 1)
Quarter: 2014Q1

REPORT INFORMATION
  Report Type: Spontaneous
  Country: BR (occurrence: BR)
  Receive Date: 20140305
  Receipt Date: 20140305
  Transmission Date: 20141002
  Serious: Yes (Other)
  Sender: FDA-Public Use
  Company Number: BR-TEVA-466411ISR

PATIENT
  Age: 54 Year
  Sex: Male
  Weight: 93 kg

DRUGS (4)
  1. TEVAFOLIN [Suspect]
     Indication: COLON CANCER
     Route: 042
     Dates: start: 20131113
  2. ATENOLOL [Concomitant]
     Indication: HYPERTENSION
     Dosage: 25 MILLIGRAM DAILY;
     Route: 048
  3. SIMVASTATIN [Concomitant]
     Indication: DIABETES MELLITUS
     Dosage: 20 MILLIGRAM DAILY;
     Route: 048
  4. INSULIN NPH [Concomitant]
     Indication: DIABETES MELLITUS
     Dosage: 35 IU (INTERNATIONAL UNIT) DAILY;
     Route: 065

REACTIONS (5)
  - Hypertension [Recovered/Resolved]
  - Hyperaemia [Recovered/Resolved]
  - Rhinitis [Recovered/Resolved]
  - Lacrimation increased [Recovered/Resolved]
  - Throat tightness [Recovered/Resolved]
